FAERS Safety Report 9540304 (Version 1)
Quarter: 2013Q2

REPORT INFORMATION
  Report Type: Spontaneous
  Country: US (occurrence: None)
  Receive Date: 20130531
  Receipt Date: 20130531
  Transmission Date: 20140414
  Serious: Yes (Hospitalization)
  Sender: FDA-Public Use
  Company Number: 361610

PATIENT
  Age: 3 Week
  Sex: Male
  Weight: 3.2 kg

DRUGS (1)
  1. NORDITROPIN FLEXPRO 3.3 MG/ML (SOMATROPIN) SOLUTION FOR INJECTION, 3.3MG/ML [Suspect]
     Indication: HYPOPITUITARISM
     Route: 058
     Dates: start: 201209

REACTIONS (1)
  - Rash generalised [None]
